FAERS Safety Report 24543287 (Version 1)
Quarter: 2024Q4

REPORT INFORMATION
  Report Type: Report from Study
  Country: CA (occurrence: CA)
  Receive Date: 20241024
  Receipt Date: 20241024
  Transmission Date: 20250115
  Serious: Yes (Other)
  Sender: NOVARTIS
  Company Number: CA-002147023-NVSC2024CA150209

PATIENT
  Age: 52 Year
  Sex: Female

DRUGS (2)
  1. KISQALI [Suspect]
     Active Substance: RIBOCICLIB
     Indication: Breast cancer metastatic
     Dosage: 200 MG, TID
     Route: 048
     Dates: start: 20240321
  2. KISQALI [Suspect]
     Active Substance: RIBOCICLIB
     Dosage: 600 MG, QD
     Route: 048

REACTIONS (8)
  - Syncope [Unknown]
  - Loss of consciousness [Unknown]
  - Breast pain [Unknown]
  - Nausea [Unknown]
  - Back pain [Recovering/Resolving]
  - Fatigue [Unknown]
  - Incorrect dose administered [Unknown]
  - Dizziness [Unknown]
